FAERS Safety Report 13269266 (Version 5)
Quarter: 2017Q3

REPORT INFORMATION
  Report Type: Spontaneous
  Country: KR (occurrence: KR)
  Receive Date: 20170224
  Receipt Date: 20170823
  Transmission Date: 20171127
  Serious: Yes (Hospitalization, Other)
  Sender: FDA-Public Use
  Company Number: KR-009507513-1702KOR010141

PATIENT
  Age: 51 Year
  Sex: Female
  Weight: 61.5 kg

DRUGS (16)
  1. ALOXI [Concomitant]
     Active Substance: PALONOSETRON HYDROCHLORIDE
     Indication: PREMEDICATION
     Dosage: 5 ML, ONCE
     Route: 042
     Dates: start: 20160111, end: 20160111
  2. MORPHINE SULFATE. [Concomitant]
     Active Substance: MORPHINE SULFATE
     Indication: PAIN
     Dosage: 5 MG, QD
     Route: 042
     Dates: start: 20160105
  3. ADCAL (CALCIUM CARBONATE (+) CALCIUM GLUCONATE (+) CALCIUM LACTATE (+) [Concomitant]
     Active Substance: CALCIUM CARBONATE\CALCIUM GLUCONATE\CALCIUM LACTATE
     Indication: OSTEOPOROSIS
     Dosage: 1 TABLET, QD
     Route: 048
  4. OXYCONTIN [Concomitant]
     Active Substance: OXYCODONE HYDROCHLORIDE
     Indication: PAIN
     Dosage: 1 TABLET, BID
     Route: 048
  5. DENOGAN [Concomitant]
     Active Substance: PROPACETAMOL HYDROCHLORIDE
     Indication: PYREXIA
     Dosage: 1 G, BID
     Route: 042
     Dates: start: 20160105, end: 20160123
  6. MEPEM [Concomitant]
     Active Substance: MEROPENEM
     Indication: PROPHYLAXIS
     Dosage: 1 G, TID
     Route: 042
     Dates: start: 20160105
  7. IRCODON [Concomitant]
     Active Substance: OXYCODONE HYDROCHLORIDE
     Indication: PAIN
     Dosage: 1 TABLET, QID
     Route: 048
  8. CISPLAN [Concomitant]
     Active Substance: CISPLATIN
     Indication: NEOPLASM MALIGNANT
     Dosage: 95 MG, ONCE, CYCLE 1
     Route: 042
     Dates: start: 20160111, end: 20160111
  9. DEXAMETHASONE SODIUM PHOSPHATE. [Concomitant]
     Active Substance: DEXAMETHASONE SODIUM PHOSPHATE
     Indication: PREMEDICATION
     Dosage: STRENGTH: 5MG/ML, 10 MG, ONCE; STRENGTH: 5 MG/ML
     Route: 042
     Dates: start: 20160111, end: 20160111
  10. FRAGMIN [Concomitant]
     Active Substance: DALTEPARIN SODIUM
     Indication: VENOUS THROMBOSIS
     Dosage: 1 VIAL, QD
     Route: 058
     Dates: start: 20160105, end: 20160118
  11. ANYDIPINE [Concomitant]
     Indication: HYPERTENSION
     Dosage: 1 TABLET, QD
     Route: 048
  12. GELOMYRTOL FORTE [Concomitant]
     Active Substance: HERBALS
     Indication: LUNG DISORDER
     Dosage: 1 CAPSULE, BID
     Route: 048
  13. GEMCITABINE HYDROCHLORIDE. [Concomitant]
     Active Substance: GEMCITABINE HYDROCHLORIDE
     Indication: NEOPLASM MALIGNANT
     Dosage: 1600 MG, ONCE, CYCLE 1
     Route: 042
     Dates: start: 20160111, end: 20160111
  14. HEBRON F [Concomitant]
     Indication: LUNG DISORDER
     Dosage: 1 TABLET, BID
     Route: 048
  15. EMEND (FOSAPREPITANT DIMEGLUMINE) [Suspect]
     Active Substance: FOSAPREPITANT DIMEGLUMINE
     Indication: PROPHYLAXIS OF NAUSEA AND VOMITING
     Dosage: 150 MG, ONCE
     Route: 042
     Dates: start: 20160111, end: 20160111
  16. NAXEN S [Concomitant]
     Indication: PYREXIA
     Dosage: 1 TABLET, BID
     Route: 048
     Dates: start: 20160111

REACTIONS (3)
  - Anaemia [Recovered/Resolved]
  - Haematochezia [Recovered/Resolved]
  - Abdominal pain [Recovered/Resolved]

NARRATIVE: CASE EVENT DATE: 20160111
